FAERS Safety Report 7169980-8 (Version None)
Quarter: 2010Q4

REPORT INFORMATION
  Report Type: 
  Country: None (occurrence: None)
  Receive Date: 20101214
  Receipt Date: 20101214
  Transmission Date: 20110411
  Serious: No
  Sender: FDA-Public Use
  Company Number: None

PATIENT
  Age: 75 Year
  Sex: Male

DRUGS (1)
  1. ASPIRIN AND DIPYRIDAMOLE [Suspect]
     Dosage: 1 TAB BID PO
     Route: 048
     Dates: start: 20100724, end: 20101007

REACTIONS (1)
  - PANCYTOPENIA [None]
